FAERS Safety Report 4513069-0 (Version None)
Quarter: 2004Q4

REPORT INFORMATION
  Report Type: 
  Country: None (occurrence: None)
  Receive Date: 20040928
  Receipt Date: 20040713
  Transmission Date: 20050328
  Serious: No
  Sender: FDA-Public Use
  Company Number: 04P-163-0266763-00

PATIENT
  Age: 29 Year
  Sex: Female
  Weight: 45.3597 kg

DRUGS (1)
  1. HUMIRA [Suspect]
     Indication: RHEUMATOID ARTHRITIS
     Dosage: 40 MG, 1 IN 2 WK, SUBCUTANEOUS
     Route: 058
     Dates: start: 20040401

REACTIONS (3)
  - COELIAC DISEASE [None]
  - DIARRHOEA [None]
  - WEIGHT DECREASED [None]
